FAERS Safety Report 14468976 (Version 1)
Quarter: 2018Q1

REPORT INFORMATION
  Report Type: Spontaneous
  Country: US (occurrence: US)
  Receive Date: 20180131
  Receipt Date: 20180131
  Transmission Date: 20180509
  Serious: Yes (Hospitalization)
  Sender: FDA-Public Use
  Company Number: US-JNJFOC-20180127274

PATIENT
  Age: 82 Year
  Sex: Female
  Weight: 62.14 kg

DRUGS (7)
  1. DILTIAZEM. [Concomitant]
     Active Substance: DILTIAZEM
     Route: 065
  2. XARELTO [Suspect]
     Active Substance: RIVAROXABAN
     Indication: ATRIAL FIBRILLATION
     Dosage: 20MG ONCE A DAY AT NIGHT
     Route: 048
     Dates: start: 2016
  3. AMIODARONE [Concomitant]
     Active Substance: AMIODARONE
     Route: 065
  4. METOPROLOL. [Concomitant]
     Active Substance: METOPROLOL
     Route: 065
  5. XARELTO [Suspect]
     Active Substance: RIVAROXABAN
     Indication: CEREBROVASCULAR ACCIDENT PROPHYLAXIS
     Dosage: 20MG ONCE A DAY AT NIGHT
     Route: 048
     Dates: start: 2016
  6. XARELTO [Suspect]
     Active Substance: RIVAROXABAN
     Indication: ATRIAL FIBRILLATION
     Route: 048
  7. XARELTO [Suspect]
     Active Substance: RIVAROXABAN
     Indication: CEREBROVASCULAR ACCIDENT PROPHYLAXIS
     Route: 048

REACTIONS (7)
  - Influenza [Recovered/Resolved]
  - Atrial fibrillation [Not Recovered/Not Resolved]
  - Alopecia [Unknown]
  - Faecaloma [Recovered/Resolved]
  - Ear infection [Unknown]
  - Dental operation [Unknown]
  - Rash [Recovered/Resolved]

NARRATIVE: CASE EVENT DATE: 201612
